FAERS Safety Report 22366373 (Version 1)
Quarter: 2023Q2

REPORT INFORMATION
  Report Type: Spontaneous
  Country: US (occurrence: None)
  Receive Date: 20230524
  Receipt Date: 20230524
  Transmission Date: 20230721
  Serious: Yes (Disabling)
  Sender: FDA-Public Use
  Company Number: None

PATIENT
  Age: 38 Year
  Sex: Female
  Weight: 67.5 kg

DRUGS (4)
  1. INFLECTRA [Suspect]
     Active Substance: INFLIXIMAB-DYYB
     Indication: Colitis ulcerative
     Dosage: OTHER FREQUENCY : EVERY 7 WEEKS;?OTHER ROUTE : INFUSION;?
     Route: 050
     Dates: start: 20230331
  2. INFLECTRA [Concomitant]
     Active Substance: INFLIXIMAB-DYYB
  3. VITAMIN D3 [Concomitant]
     Active Substance: CHOLECALCIFEROL
  4. VITAMINS [Concomitant]
     Active Substance: VITAMINS

REACTIONS (3)
  - Product substitution issue [None]
  - Abdominal pain upper [None]
  - Colitis ulcerative [None]

NARRATIVE: CASE EVENT DATE: 20230512
